FAERS Safety Report 14364051 (Version 1)
Quarter: 2018Q1

REPORT INFORMATION
  Report Type: Spontaneous
  Country: US (occurrence: US)
  Receive Date: 20180108
  Receipt Date: 20180108
  Transmission Date: 20180509
  Serious: No
  Sender: FDA-Public Use
  Company Number: US-ASTRAZENECA-2018SE01988

PATIENT
  Age: 67 Year
  Sex: Female
  Weight: 49 kg

DRUGS (1)
  1. SYMBICORT [Suspect]
     Active Substance: BUDESONIDE\FORMOTEROL FUMARATE DIHYDRATE
     Indication: ASTHMA
     Dosage: 80 4.5, 2 PUFFS IN THE MORNING AND 2 PUFFS IN THE EVENING (TWO TIMES A DAY)
     Route: 055

REACTIONS (3)
  - Hypersensitivity [Recovered/Resolved]
  - Nasal congestion [Recovered/Resolved]
  - Wrong technique in product usage process [Unknown]
